FAERS Safety Report 9378480 (Version 2)
Quarter: 2013Q3

REPORT INFORMATION
  Report Type: Report from Study
  Country: US (occurrence: US)
  Receive Date: 20130702
  Receipt Date: 20130821
  Transmission Date: 20140515
  Serious: Yes (Hospitalization)
  Sender: FDA-Public Use
  Company Number: US-ROCHE-1240140

PATIENT
  Age: 78 Year
  Sex: Female
  Weight: 42.68 kg

DRUGS (3)
  1. XELODA [Suspect]
     Indication: BREAST CANCER METASTATIC
     Dosage: DOSE: AM, AND 135.
     Route: 048
     Dates: start: 20130211
  2. XELODA [Suspect]
     Route: 048
     Dates: start: 20130121, end: 201306
  3. COUMADIN [Concomitant]
     Route: 065

REACTIONS (5)
  - Pneumothorax [Recovered/Resolved]
  - Stomatitis [Recovered/Resolved]
  - Mouth haemorrhage [Not Recovered/Not Resolved]
  - Epistaxis [Not Recovered/Not Resolved]
  - Skin discolouration [Not Recovered/Not Resolved]
